FAERS Safety Report 17229693 (Version 3)
Quarter: 2020Q1

REPORT INFORMATION
  Report Type: Spontaneous
  Country: CA (occurrence: CA)
  Receive Date: 20200103
  Receipt Date: 20200121
  Transmission Date: 20200409
  Serious: Yes (Hospitalization, Other)
  Sender: FDA-Public Use
  Company Number: CA-PFIZER INC-2019513633

PATIENT
  Age: 48 Year
  Sex: Male
  Weight: 85.26 kg

DRUGS (8)
  1. MARCAINE [Suspect]
     Active Substance: BUPIVACAINE HYDROCHLORIDE
     Indication: BACK PAIN
     Dosage: UNK(LOW DOSE, FOR 7 YEARS)
     Dates: start: 2011
  2. METHYLPHENIDATE. [Concomitant]
     Active Substance: METHYLPHENIDATE
     Dosage: UNK
  3. MARCAINE [Suspect]
     Active Substance: BUPIVACAINE HYDROCHLORIDE
     Indication: PAIN
  4. OXYCOCET [Concomitant]
     Active Substance: ACETAMINOPHEN\OXYCODONE HYDROCHLORIDE
     Dosage: UNK
  5. MARCAINE [Suspect]
     Active Substance: BUPIVACAINE HYDROCHLORIDE
     Indication: POST-TRAUMATIC STRESS DISORDER
  6. LORAZEPAM. [Concomitant]
     Active Substance: LORAZEPAM
     Dosage: UNK
     Dates: start: 2012
  7. OXYCODONE [Concomitant]
     Active Substance: OXYCODONE
     Dosage: UNK
     Dates: start: 2006
  8. SOFLAX [DOCUSATE SODIUM] [Concomitant]
     Dosage: UNK
     Dates: start: 2000

REACTIONS (8)
  - Urinary tract disorder [Unknown]
  - Neuralgia [Not Recovered/Not Resolved]
  - Vision blurred [Unknown]
  - Hallucination, visual [Unknown]
  - Defaecation disorder [Unknown]
  - Injury [Not Recovered/Not Resolved]
  - Spleen disorder [Unknown]
  - Feeling abnormal [Not Recovered/Not Resolved]
